FAERS Safety Report 9123261 (Version 1)
Quarter: 2013Q1

REPORT INFORMATION
  Report Type: Spontaneous
  Country: US (occurrence: US)
  Receive Date: 20130227
  Receipt Date: 20130227
  Transmission Date: 20140127
  Serious: No
  Sender: FDA-Public Use
  Company Number: US-B.I. PHARMACEUTICALS,INC./RIDGEFIELD-2013-BI-04491BP

PATIENT
  Age: 60 Year
  Sex: Female
  Weight: 73 kg

DRUGS (5)
  1. SPIRIVA [Suspect]
     Indication: CHRONIC OBSTRUCTIVE PULMONARY DISEASE
     Dosage: 18 MCG
     Route: 055
     Dates: start: 2009
  2. LASIX [Concomitant]
     Route: 048
  3. SEROQUEL [Concomitant]
     Dosage: 200 MG
     Route: 048
  4. XANAX [Concomitant]
     Route: 048
  5. CELEXA [Concomitant]
     Indication: DEPRESSION
     Dosage: 40 MG
     Route: 048

REACTIONS (3)
  - Headache [Not Recovered/Not Resolved]
  - Choking [Recovered/Resolved]
  - Product quality issue [Recovered/Resolved]
